FAERS Safety Report 5956743-1 (Version None)
Quarter: 2008Q4

REPORT INFORMATION
  Report Type: 
  Country: None (occurrence: None)
  Receive Date: 20081118
  Receipt Date: 20081110
  Transmission Date: 20090506
  Serious: Yes (Hospitalization, Other)
  Sender: FDA-Public Use
  Company Number: BR-ABBOTT-08P-020-0456381-00

PATIENT
  Sex: Female

DRUGS (3)
  1. HUMIRA [Suspect]
     Indication: RHEUMATOID ARTHRITIS
     Dosage: 1 APPLICATION EVERY 14 DAYS
     Route: 058
     Dates: start: 20071017, end: 20080708
  2. CELECOXIB [Concomitant]
     Indication: PAIN
     Route: 048
  3. LEFLUNOMIDE [Concomitant]
     Indication: DRUG USE FOR UNKNOWN INDICATION

REACTIONS (2)
  - DEVICE RELATED INFECTION [None]
  - DISLOCATION OF JOINT PROSTHESIS [None]
